FAERS Safety Report 7218538-0 (Version None)
Quarter: 2011Q1

REPORT INFORMATION
  Report Type: 
  Country: None (occurrence: None)
  Receive Date: 20110110
  Receipt Date: 20110104
  Transmission Date: 20110831
  Serious: Yes (Hospitalization)
  Sender: FDA-Public Use
  Company Number: FR-PFIZER INC-2010179836

PATIENT
  Age: 78 Year
  Sex: Male
  Weight: 62 kg

DRUGS (6)
  1. IMIPENEM AND CILASTATIN [Concomitant]
  2. RIMACTANE [Concomitant]
  3. TRIFLUCAN [Concomitant]
  4. DOLIPRANE [Concomitant]
  5. MS CONTIN [Concomitant]
  6. ZYVOX [Suspect]
     Indication: OSTEOARTHRITIS
     Dosage: 600 MG, 2X/DAY
     Route: 048
     Dates: start: 20101021, end: 20101105

REACTIONS (2)
  - CONFUSIONAL STATE [None]
  - HALLUCINATION [None]
